FAERS Safety Report 19912570 (Version 1)
Quarter: 2021Q4

REPORT INFORMATION
  Report Type: Spontaneous
  Country: US (occurrence: US)
  Receive Date: 20211004
  Receipt Date: 20211004
  Transmission Date: 20220304
  Serious: No
  Sender: FDA-Public Use
  Company Number: US-PFIZER INC-2021469656

PATIENT
  Age: 74 Year
  Sex: Male

DRUGS (1)
  1. INLYTA [Suspect]
     Active Substance: AXITINIB
     Dosage: 5 MG
     Dates: start: 20210407

REACTIONS (3)
  - Dysphonia [Not Recovered/Not Resolved]
  - Glossodynia [Not Recovered/Not Resolved]
  - Bone pain [Not Recovered/Not Resolved]
